FAERS Safety Report 19659252 (Version 3)
Quarter: 2022Q1

REPORT INFORMATION
  Report Type: Spontaneous
  Country: JP (occurrence: JP)
  Receive Date: 20210805
  Receipt Date: 20220302
  Transmission Date: 20220423
  Serious: Yes (Hospitalization)
  Sender: FDA-Public Use
  Company Number: JP-JNJJAKJPN-202164804

PATIENT
  Age: 58 Year
  Sex: Male
  Weight: 67.4 kg

DRUGS (7)
  1. TREMFYA [Suspect]
     Active Substance: GUSELKUMAB
     Indication: Psoriasis
     Route: 058
     Dates: start: 20210209, end: 20210603
  2. TREMFYA [Suspect]
     Active Substance: GUSELKUMAB
     Route: 058
     Dates: start: 20210902
  3. TREMFYA [Suspect]
     Active Substance: GUSELKUMAB
  4. VALSARTAN [Concomitant]
     Active Substance: VALSARTAN
     Indication: Hypertension
     Route: 048
  5. FEBUXOSTAT [Concomitant]
     Active Substance: FEBUXOSTAT
     Indication: Hyperuricaemia
     Route: 048
  6. CYCLOSERINE [Concomitant]
     Active Substance: CYCLOSERINE
     Indication: Psoriasis
     Route: 003
  7. OXAROL [Concomitant]
     Active Substance: MAXACALCITOL
     Indication: Psoriasis
     Route: 003

REACTIONS (1)
  - Cellulitis [Recovering/Resolving]

NARRATIVE: CASE EVENT DATE: 20210719
